FAERS Safety Report 10096966 (Version 2)
Quarter: 2014Q2

REPORT INFORMATION
  Report Type: Spontaneous
  Country: US (occurrence: US)
  Receive Date: 20140422
  Receipt Date: 20140422
  Transmission Date: 20141212
  Serious: No
  Sender: FDA-Public Use
  Company Number: US-GILEAD-2012-0063232

PATIENT
  Age: 35 Year
  Sex: Female

DRUGS (2)
  1. LETAIRIS [Suspect]
     Indication: COR PULMONALE CHRONIC
     Dosage: 5 MG, UNK
     Route: 048
     Dates: start: 20070809
  2. REMODULIN [Concomitant]

REACTIONS (12)
  - Limb injury [Unknown]
  - Local swelling [Unknown]
  - Pain in extremity [Unknown]
  - Joint swelling [Unknown]
  - Contusion [Unknown]
  - Heart rate decreased [Unknown]
  - Heart rate irregular [Unknown]
  - Pallor [Unknown]
  - Malaise [Unknown]
  - Dizziness [Unknown]
  - Asthenia [Unknown]
  - Fatigue [Unknown]
